FAERS Safety Report 5033719-2 (Version None)
Quarter: 2006Q2

REPORT INFORMATION
  Report Type: 
  Country: None (occurrence: None)
  Receive Date: 20060518
  Receipt Date: 20050723
  Transmission Date: 20061013
  Serious: Yes (Other)
  Sender: FDA-Public Use
  Company Number: 2005084139

PATIENT
  Age: 21 Year
  Sex: Female
  Weight: 52.6173 kg

DRUGS (2)
  1. DEPO-PROVERA [Suspect]
     Indication: CONTRACEPTION
     Dosage: 150 MG (150 MG,FIRST INJECTION /TRIMESTRAL)
     Dates: start: 20041209, end: 20041209
  2. ALBUTEROL [Concomitant]

REACTIONS (2)
  - MEDICATION ERROR [None]
  - UNINTENDED PREGNANCY [None]
